FAERS Safety Report 9817745 (Version 3)
Quarter: 2014Q1

REPORT INFORMATION
  Report Type: Spontaneous
  Country: US (occurrence: US)
  Receive Date: 20140115
  Receipt Date: 20140117
  Transmission Date: 20141002
  Serious: Yes (Disabling)
  Sender: FDA-Public Use
  Company Number: US-BEH-2011028162

PATIENT
  Age: 55 Year
  Sex: Female
  Weight: 131 kg

DRUGS (36)
  1. ZEMAIRA [Suspect]
     Indication: ALPHA-1 ANTI-TRYPSIN DEFICIENCY
     Dosage: 60 MG/KG +/- 10% AT RATE OF 0.08 ML PER KG PER MIN
     Route: 042
     Dates: start: 20080520
  2. ZEMAIRA [Suspect]
     Dosage: 999 MG VIAL
  3. ZEMAIRA [Suspect]
     Dosage: 1008 MG VIAL
  4. ZEMAIRA [Suspect]
     Route: 042
  5. ATENOLOL [Concomitant]
  6. ACETAMINOPHEN [Concomitant]
  7. HEPARIN [Concomitant]
  8. METOLAZONE [Concomitant]
  9. OXYGEN [Concomitant]
  10. BUMEX [Concomitant]
  11. NIFEDIPINE [Concomitant]
  12. LISINOPRIL [Concomitant]
  13. NOVOLOG [Concomitant]
  14. DOCUSATE SODIUM\SENNOSIDES [Concomitant]
  15. GLYCOLAX [Concomitant]
  16. DOCUSATE [Concomitant]
  17. ALBUTEROL [Concomitant]
  18. BETAMETHASONE [Concomitant]
  19. TRICOR [Concomitant]
  20. DIOVAN [Concomitant]
  21. PROVENTIL [Concomitant]
  22. FORADIL [Concomitant]
  23. LEVOTHYROXINE [Concomitant]
  24. ASPIRIN [Concomitant]
  25. NITROQUICK [Concomitant]
  26. DIPHENHYDRAMINE [Concomitant]
  27. NORMAL SALINE [Concomitant]
  28. SODIUM CHLORIDE [Concomitant]
  29. BENADRYL [Concomitant]
  30. EPI-PEN [Concomitant]
  31. LMX [Concomitant]
  32. POTASSIUM CHLORIDE [Concomitant]
  33. BROVANA [Concomitant]
  34. ALOE VERA LOTION [Concomitant]
  35. CENTRUM [Concomitant]
  36. CALCIUM + D [Concomitant]

REACTIONS (4)
  - Rash pruritic [Recovered/Resolved]
  - Rash [Recovered/Resolved]
  - Nasal congestion [Not Recovered/Not Resolved]
  - Nasopharyngitis [Not Recovered/Not Resolved]
